FAERS Safety Report 7299252-2 (Version None)
Quarter: 2011Q1

REPORT INFORMATION
  Report Type: 
  Country: None (occurrence: None)
  Receive Date: 20110217
  Receipt Date: 20110215
  Transmission Date: 20110831
  Serious: Yes (Hospitalization, Other)
  Sender: FDA-Public Use
  Company Number: US-MERCK-1011USA00019

PATIENT
  Age: 75 Year
  Sex: Female
  Weight: 62 kg

DRUGS (11)
  1. LIPITOR [Concomitant]
     Route: 065
  2. CARVEDILOL [Concomitant]
     Route: 065
  3. PERPHENAZINE [Concomitant]
     Route: 048
  4. FUROSEMIDE [Concomitant]
     Route: 065
  5. GLYBURIDE [Concomitant]
     Route: 065
  6. PLAVIX [Concomitant]
     Route: 065
  7. AMBIEN [Concomitant]
     Route: 065
  8. CALCITRIOL [Concomitant]
     Route: 065
  9. JANUVIA [Suspect]
     Indication: TYPE 2 DIABETES MELLITUS
     Route: 048
     Dates: end: 20101001
  10. NIFEDIPINE [Concomitant]
     Route: 065
  11. ESCITALOPRAM [Concomitant]
     Route: 065

REACTIONS (2)
  - PANCREATITIS ACUTE [None]
  - PANCREATIC CYST [None]
